FAERS Safety Report 4372585-5 (Version None)
Quarter: 2004Q2

REPORT INFORMATION
  Report Type: 
  Country: None (occurrence: None)
  Receive Date: 20040526
  Receipt Date: 20040513
  Transmission Date: 20050107
  Serious: Yes (Hospitalization)
  Sender: FDA-Public Use
  Company Number: 2004AP02720

PATIENT
  Age: 57 Year
  Sex: Male

DRUGS (2)
  1. DIPRIVAN [Suspect]
     Indication: SEDATION
     Dosage: 4 ML /HR IV
     Route: 042
     Dates: start: 20040318, end: 20040331
  2. EPADEL [Concomitant]

REACTIONS (2)
  - GAMMA-GLUTAMYLTRANSFERASE INCREASED [None]
  - LIVER DISORDER [None]
